FAERS Safety Report 5197689-9 (Version None)
Quarter: 2006Q4

REPORT INFORMATION
  Report Type: 
  Country: None (occurrence: None)
  Receive Date: 20061227
  Receipt Date: 20061213
  Transmission Date: 20070319
  Serious: Yes (Death, Hospitalization)
  Sender: FDA-Public Use
  Company Number: 2006140704

PATIENT
  Age: 73 Year
  Sex: Male
  Weight: 96 kg

DRUGS (13)
  1. SU-011, 248 (SUNITINB MALATE) [Suspect]
     Indication: METASTATIC RENAL CELL CARCINOMA
     Dosage: 50 MG (50 MG, QD: EVERY DAY), ORAL
     Route: 048
     Dates: start: 20060502, end: 20061108
  2. ENALAPRIL MALEATE [Concomitant]
  3. AMLODIPINE [Concomitant]
  4. AMIODARONE HCL [Concomitant]
  5. ASPIRIN [Concomitant]
  6. CARVEDILOL [Concomitant]
  7. AMOXICILLIN W/CLAVULANATE POTASSIUM (AMOXICILLIN, CLAVULANATE POTASSIU [Concomitant]
  8. CEFTRIAXONE [Concomitant]
  9. HYDROCORTISONE [Concomitant]
  10. RANITIDINE [Concomitant]
  11. SALBUTAMOL (SALBUTAMOL) [Concomitant]
  12. PHYTONADIONE [Concomitant]
  13. FLUCONAZOLE [Concomitant]

REACTIONS (4)
  - ADRENAL INSUFFICIENCY [None]
  - CARDIO-RESPIRATORY ARREST [None]
  - MUCOSAL INFLAMMATION [None]
  - PNEUMONIA [None]
